FAERS Safety Report 6851753-4 (Version None)
Quarter: 2010Q3

REPORT INFORMATION
  Report Type: 
  Country: None (occurrence: None)
  Receive Date: 20100717
  Receipt Date: 20071026
  Transmission Date: 20110219
  Serious: No
  Sender: FDA-Public Use
  Company Number: US-PFIZER INC-2007092518

PATIENT
  Sex: Male
  Weight: 104.3 kg

DRUGS (5)
  1. CHANTIX [Suspect]
     Indication: SMOKING CESSATION THERAPY
     Dates: start: 20071010
  2. TOPROL-XL [Concomitant]
  3. ZETIA [Concomitant]
  4. UROXATRAL [Concomitant]
  5. PROTONIX [Concomitant]

REACTIONS (3)
  - FEELING OF RELAXATION [None]
  - PERSONALITY CHANGE [None]
  - UNRESPONSIVE TO STIMULI [None]
